FAERS Safety Report 12695083 (Version 2)
Quarter: 2016Q4

REPORT INFORMATION
  Report Type: Report from Study
  Country: CA (occurrence: CA)
  Receive Date: 20160829
  Receipt Date: 20161205
  Transmission Date: 20170207
  Serious: Yes (Other)
  Sender: FDA-Public Use
  Company Number: CA-JNJFOC-20160820018

PATIENT
  Age: 69 Year
  Sex: Male
  Weight: 91.1 kg

DRUGS (2)
  1. REMICADE [Suspect]
     Active Substance: INFLIXIMAB
     Indication: PSORIASIS
     Route: 042
     Dates: start: 20091220
  2. REMICADE [Suspect]
     Active Substance: INFLIXIMAB
     Indication: PSORIASIS
     Route: 042

REACTIONS (8)
  - Localised infection [Unknown]
  - Depression [Not Recovered/Not Resolved]
  - Road traffic accident [Unknown]
  - Psoriasis [Unknown]
  - Scratch [Recovering/Resolving]
  - Off label use [Unknown]
  - Product use issue [Unknown]
  - Fall [Unknown]

NARRATIVE: CASE EVENT DATE: 201607
